FAERS Safety Report 5113903-X (Version None)
Quarter: 2006Q3

REPORT INFORMATION
  Report Type: 
  Country: None (occurrence: None)
  Receive Date: 20060922
  Receipt Date: 20060922
  Transmission Date: 20061208
  Serious: Yes (Hospitalization)
  Sender: FDA-Public Use
  Company Number: None

PATIENT
  Age: 66 Year
  Sex: Female
  Weight: 65.318 kg

DRUGS (10)
  1. REMODULIN [Suspect]
     Indication: PULMONARY HYPERTENSION
     Dosage: 106 NG/KG/MIN IV
     Route: 042
  2. COUMADIN [Concomitant]
  3. SYNTHROID [Concomitant]
  4. M.V.I. [Concomitant]
  5. LASIX [Concomitant]
  6. TRACLEER [Concomitant]
  7. CRYSTALLINE VIT B12 INJ [Concomitant]
  8. POTASSIUM [Concomitant]
  9. PREVARIN [Concomitant]
  10. CORTISONE [Concomitant]

REACTIONS (3)
  - CATHETER RELATED INFECTION [None]
  - PSEUDOMONAS INFECTION [None]
  - THERAPEUTIC RESPONSE DECREASED [None]
